FAERS Safety Report 13894102 (Version 1)
Quarter: 2017Q3

REPORT INFORMATION
  Report Type: Report from Study
  Country: US (occurrence: US)
  Receive Date: 20170822
  Receipt Date: 20170822
  Transmission Date: 20171127
  Serious: Yes (Other)
  Sender: FDA-Public Use
  Company Number: US-GILEAD-2017-0283554

PATIENT
  Age: 77 Year
  Sex: Male

DRUGS (1)
  1. IDELALISIB [Suspect]
     Active Substance: IDELALISIB
     Indication: CHRONIC LYMPHOCYTIC LEUKAEMIA
     Dosage: 150 MG, BID
     Route: 048
     Dates: start: 201702, end: 20170707

REACTIONS (9)
  - Acute leukaemia [Not Recovered/Not Resolved]
  - Platelet disorder [Unknown]
  - Red blood cell abnormality [Unknown]
  - Neutropenia [Unknown]
  - Pneumonia [Unknown]
  - Haemoglobin abnormal [Unknown]
  - White blood cell count decreased [Unknown]
  - Disease progression [Unknown]
  - Laboratory test abnormal [Unknown]
